FAERS Safety Report 14435810 (Version 1)
Quarter: 2018Q1

REPORT INFORMATION
  Report Type: Spontaneous
  Country: US (occurrence: US)
  Receive Date: 20180124
  Receipt Date: 20180124
  Transmission Date: 20180509
  Serious: No
  Sender: FDA-Public Use
  Company Number: None

PATIENT
  Age: 24 Year
  Sex: Female
  Weight: 68.4 kg

DRUGS (2)
  1. CHANTIX [Suspect]
     Active Substance: VARENICLINE TARTRATE
     Indication: SMOKING CESSATION THERAPY
  2. WELLBUTRIN [Concomitant]
     Active Substance: BUPROPION HYDROCHLORIDE

REACTIONS (8)
  - Paranoia [None]
  - Alcohol poisoning [None]
  - Memory impairment [None]
  - Photophobia [None]
  - Hyperacusis [None]
  - Feeling abnormal [None]
  - Alcohol use [None]
  - Hallucination [None]

NARRATIVE: CASE EVENT DATE: 20170102
